FAERS Safety Report 20729058 (Version 2)
Quarter: 2022Q2

REPORT INFORMATION
  Report Type: Report from Study
  Country: BR (occurrence: BR)
  Receive Date: 20220420
  Receipt Date: 20220504
  Transmission Date: 20220721
  Serious: Yes (Other)
  Sender: FDA-Public Use
  Company Number: BR-NOVARTISPH-NVSC2022BR089421

PATIENT
  Sex: Male
  Weight: 120 kg

DRUGS (2)
  1. COSENTYX [Suspect]
     Active Substance: SECUKINUMAB
     Indication: Psoriatic arthropathy
     Dosage: 300 MG
     Route: 065
     Dates: start: 20211202
  2. COSENTYX [Suspect]
     Active Substance: SECUKINUMAB
     Dosage: UNK, QMO (2 PENS)
     Route: 065

REACTIONS (8)
  - Uveitis [Unknown]
  - Eye inflammation [Not Recovered/Not Resolved]
  - Pain [Unknown]
  - Sinusitis [Not Recovered/Not Resolved]
  - Sneezing [Unknown]
  - Secretion discharge [Unknown]
  - Pelvic pain [Not Recovered/Not Resolved]
  - Spinal pain [Not Recovered/Not Resolved]
